FAERS Safety Report 25878912 (Version 1)
Quarter: 2025Q4

REPORT INFORMATION
  Report Type: Spontaneous
  Country: EU (occurrence: EU)
  Receive Date: 20251003
  Receipt Date: 20251003
  Transmission Date: 20260118
  Serious: Yes (Life-Threatening, Hospitalization, Other)
  Sender: BAUSCH AND LOMB
  Company Number: None

PATIENT
  Sex: Female
  Weight: 60 kg

DRUGS (9)
  1. VENLAFAXINE [Suspect]
     Active Substance: VENLAFAXINE HYDROCHLORIDE
     Indication: Depression
     Route: 048
     Dates: start: 202401, end: 202406
  2. METHYLDOPA [Concomitant]
     Active Substance: METHYLDOPA
     Indication: Pre-eclampsia
     Route: 048
     Dates: start: 202406, end: 202406
  3. MAGNESIUM [Concomitant]
     Active Substance: MAGNESIUM
     Indication: Prophylaxis
     Route: 048
     Dates: start: 202404, end: 202406
  4. NIFEDIPINE [Concomitant]
     Active Substance: NIFEDIPINE
     Indication: Pre-eclampsia
     Route: 048
     Dates: start: 202406, end: 202406
  5. URAPIDIL [Concomitant]
     Active Substance: URAPIDIL
     Indication: Pre-eclampsia
     Route: 042
     Dates: start: 202406, end: 202406
  6. ASPIRIN [Concomitant]
     Active Substance: ASPIRIN
     Indication: Prophylaxis
     Route: 048
     Dates: start: 202404, end: 202405
  7. ASPIRIN [Concomitant]
     Active Substance: ASPIRIN
     Route: 048
     Dates: start: 202405, end: 202406
  8. MAGNESIUM [Concomitant]
     Active Substance: MAGNESIUM
     Indication: Pre-eclampsia
     Route: 042
     Dates: start: 202406, end: 202406
  9. METOPROLOL [Concomitant]
     Active Substance: METOPROLOL
     Indication: Pre-eclampsia
     Route: 048
     Dates: start: 202406, end: 202406

REACTIONS (3)
  - HELLP syndrome [Recovered/Resolved]
  - Foetal growth restriction [Recovered/Resolved]
  - Maternal exposure during pregnancy [Unknown]

NARRATIVE: CASE EVENT DATE: 20240601
